FAERS Safety Report 8258571-3 (Version None)
Quarter: 2012Q2

REPORT INFORMATION
  Report Type: 
  Country: None (occurrence: None)
  Receive Date: 20120404
  Receipt Date: 20120328
  Transmission Date: 20120825
  Serious: Yes (Life-Threatening, Other)
  Sender: FDA-Public Use
  Company Number: JP-CELGENEUS-087-50794-11101761

PATIENT
  Sex: Male
  Weight: 68 kg

DRUGS (10)
  1. KYTRIL [Concomitant]
     Dosage: 2 MILLIGRAM
     Route: 048
     Dates: start: 20110530, end: 20110605
  2. PRIMOBOLAN-DEPOT INJ [Concomitant]
     Dosage: 15 MILLIGRAM
     Route: 048
     Dates: end: 20110608
  3. MAGNESIUM OXIDE [Concomitant]
     Dosage: 2 GRAM
     Route: 048
     Dates: start: 20110609, end: 20110615
  4. GLAKAY [Concomitant]
     Dosage: 45 MILLIGRAM
     Route: 048
  5. ROCALTROL [Concomitant]
     Dosage: .5 MICROGRAM
     Route: 048
  6. AMLODIPINE [Concomitant]
     Dosage: 2.5 MILLIGRAM
     Route: 048
     Dates: start: 20110607, end: 20110616
  7. VIDAZA [Suspect]
     Dosage: 75 MILLIGRAM/SQ. METER
     Route: 058
     Dates: start: 20110530, end: 20110605
  8. DECADRON [Concomitant]
     Dosage: 4 MILLIGRAM
     Route: 048
     Dates: start: 20110530, end: 20110605
  9. VIDAZA [Suspect]
     Dosage: 75 MILLIGRAM/SQ. METER
     Route: 058
     Dates: start: 20110630, end: 20110706
  10. PRIMOBOLAN-DEPOT INJ [Concomitant]
     Dosage: 5 MILLIGRAM
     Route: 048
     Dates: start: 20110609, end: 20110615

REACTIONS (4)
  - NEUTROPHIL COUNT DECREASED [None]
  - HYPERTENSION [None]
  - WHITE BLOOD CELL COUNT DECREASED [None]
  - RED BLOOD CELL COUNT DECREASED [None]
